FAERS Safety Report 7684725-0 (Version None)
Quarter: 2011Q3

REPORT INFORMATION
  Report Type: 
  Country: None (occurrence: None)
  Receive Date: 20110810
  Receipt Date: 20110808
  Transmission Date: 20111222
  Serious: Yes (Disabling, Other)
  Sender: FDA-Public Use
  Company Number: ACO_25351_2011

PATIENT
  Age: 33 Year
  Sex: Female
  Weight: 136.1 kg

DRUGS (6)
  1. RITALIN (METHYLPHENIDATE VHYDROCHLORIDE) [Concomitant]
  2. BETASERON [Concomitant]
  3. AMPYRA [Suspect]
     Indication: GAIT DISTURBANCE
     Dosage: 10 MG, Q 12 HRS, ORAL 10 MG, ORAL
     Route: 048
     Dates: start: 20110701
  4. AMPYRA [Suspect]
     Indication: GAIT DISTURBANCE
     Dosage: 10 MG, Q 12 HRS, ORAL 10 MG, ORAL
     Route: 048
     Dates: start: 20110614, end: 20110625
  5. WELLBUTRIN [Concomitant]
  6. MULTI-VITAMINS [Concomitant]

REACTIONS (4)
  - EAR DISCOMFORT [None]
  - SENSATION OF HEAVINESS [None]
  - MULTIPLE SCLEROSIS RELAPSE [None]
  - DEAFNESS UNILATERAL [None]
